FAERS Safety Report 5524725-X (Version None)
Quarter: 2007Q4

REPORT INFORMATION
  Report Type: 
  Country: None (occurrence: None)
  Receive Date: 20071123
  Receipt Date: 20071120
  Transmission Date: 20080405
  Serious: Yes (Death)
  Sender: FDA-Public Use
  Company Number: PHEH2007US13655

PATIENT
  Sex: Male
  Weight: 87.981 kg

DRUGS (4)
  1. DIOVAN [Suspect]
     Indication: HYPERTENSION
     Dosage: 160 MG, UNK
     Dates: start: 20051017
  2. GLIPIZIDE [Concomitant]
     Dosage: UNK, UNK
  3. METFORMIN HCL [Concomitant]
     Dosage: UNK, UNK
  4. WARFARIN SODIUM [Concomitant]
     Dosage: UNK, UNK

REACTIONS (2)
  - FALL [None]
  - HEAD INJURY [None]
